FAERS Safety Report 6857319-4 (Version None)
Quarter: 2010Q3

REPORT INFORMATION
  Report Type: 
  Country: None (occurrence: None)
  Receive Date: 20100719
  Receipt Date: 20100707
  Transmission Date: 20110219
  Serious: Yes (Other)
  Sender: FDA-Public Use
  Company Number: US-PFIZER INC-2010085519

PATIENT
  Sex: Female
  Weight: 63.492 kg

DRUGS (1)
  1. SERTRALINE HCL [Suspect]
     Indication: MENOPAUSE
     Dosage: 50 MG, 2X/DAY
     Route: 048
     Dates: start: 20100330

REACTIONS (7)
  - ANXIETY [None]
  - DECREASED APPETITE [None]
  - DEPRESSION [None]
  - DRUG INEFFECTIVE [None]
  - FEELING ABNORMAL [None]
  - NAUSEA [None]
  - SLEEP DISORDER [None]
